FAERS Safety Report 17737155 (Version 1)
Quarter: 2020Q2

REPORT INFORMATION
  Report Type: Spontaneous
  Country: FR (occurrence: FR)
  Receive Date: 20200502
  Receipt Date: 20200502
  Transmission Date: 20200714
  Serious: Yes (Death)
  Sender: FDA-Public Use
  Company Number: FR-TEVA-2020-FR-1229441

PATIENT
  Age: 50 Year
  Sex: Female

DRUGS (4)
  1. BUPRENORPHINE. [Suspect]
     Active Substance: BUPRENORPHINE
     Route: 065
  2. BROMAZEPAM [Suspect]
     Active Substance: BROMAZEPAM
     Route: 065
  3. LOXAPINE (SUCCINATE DE) [Suspect]
     Active Substance: LOXAPINE SUCCINATE
     Route: 065
  4. TROPATEPINE (CHLORHYDRATE DE) [Suspect]
     Active Substance: TROPATEPINE HYDROCHLORIDE
     Route: 065

REACTIONS (1)
  - Death [Fatal]
